FAERS Safety Report 11483295 (Version 1)
Quarter: 2015Q3

REPORT INFORMATION
  Report Type: Spontaneous
  Country: US (occurrence: US)
  Receive Date: 20150903
  Receipt Date: 20150903
  Transmission Date: 20151125
  Serious: No
  Sender: FDA-Public Use
  Company Number: US-ELI_LILLY_AND_COMPANY-US201206003967

PATIENT
  Age: 44 Year
  Sex: Male

DRUGS (1)
  1. CYMBALTA [Suspect]
     Active Substance: DULOXETINE HYDROCHLORIDE
     Indication: DEPRESSION
     Dosage: 90 MG, QD
     Dates: start: 201202, end: 20120530

REACTIONS (8)
  - Withdrawal syndrome [Unknown]
  - Feeling of body temperature change [Unknown]
  - Insomnia [Unknown]
  - Disorientation [Unknown]
  - Visual impairment [Unknown]
  - Dizziness [Unknown]
  - Ear disorder [Unknown]
  - Muscular weakness [Unknown]
